FAERS Safety Report 5961512-2 (Version None)
Quarter: 2008Q4

REPORT INFORMATION
  Report Type: 
  Country: None (occurrence: None)
  Receive Date: 20081121
  Receipt Date: 20081119
  Transmission Date: 20090506
  Serious: Yes (Death, Hospitalization)
  Sender: FDA-Public Use
  Company Number: JP-JNJFOC-20081104683

PATIENT
  Age: 68 Year
  Sex: Female

DRUGS (5)
  1. FENTANYL CITRATE [Suspect]
     Route: 062
  2. FENTANYL CITRATE [Suspect]
     Indication: CANCER PAIN
     Route: 062
  3. FENTANYL CITRATE [Suspect]
     Route: 062
  4. OPSO [Suspect]
     Indication: CANCER PAIN
     Route: 048
  5. NOVAMIN [Suspect]
     Indication: DRUG USE FOR UNKNOWN INDICATION
     Route: 048

REACTIONS (8)
  - CHOLANGITIS [None]
  - CONCOMITANT DISEASE AGGRAVATED [None]
  - CONSTIPATION [None]
  - MUSCULAR WEAKNESS [None]
  - NAUSEA [None]
  - SOMNOLENCE [None]
  - URINARY RETENTION [None]
  - VOMITING [None]
